FAERS Safety Report 6466440-4 (Version None)
Quarter: 2009Q4

REPORT INFORMATION
  Report Type: 
  Country: None (occurrence: None)
  Receive Date: 20091202
  Receipt Date: 20081109
  Transmission Date: 20100525
  Serious: No
  Sender: FDA-Public Use
  Company Number: US-AMGEN-KDL318131

PATIENT
  Sex: Female

DRUGS (1)
  1. ENBREL [Suspect]
     Indication: RHEUMATOID ARTHRITIS
     Route: 058
     Dates: start: 20081021

REACTIONS (6)
  - CONTUSION [None]
  - FATIGUE [None]
  - FIBROMYALGIA [None]
  - INJECTION SITE RASH [None]
  - MUSCULOSKELETAL STIFFNESS [None]
  - MYALGIA [None]
